FAERS Safety Report 6629506-1 (Version None)
Quarter: 2010Q1

REPORT INFORMATION
  Report Type: 
  Country: None (occurrence: None)
  Receive Date: 20100311
  Receipt Date: 20090722
  Transmission Date: 20100710
  Serious: No
  Sender: FDA-Public Use
  Company Number: US-BIOGENIDEC-2009BI022729

PATIENT
  Sex: Female

DRUGS (3)
  1. AVONEX [Suspect]
     Indication: MULTIPLE SCLEROSIS
     Route: 030
     Dates: start: 19960718, end: 20030801
  2. AVONEX [Suspect]
     Route: 030
     Dates: start: 20030901
  3. ZOCOR [Concomitant]
     Indication: HYPERLIPIDAEMIA

REACTIONS (1)
  - TORTICOLLIS [None]
